FAERS Safety Report 8894927 (Version 1)
Quarter: 2012Q4

REPORT INFORMATION
  Report Type: 
  Country: US (occurrence: US)
  Receive Date: 20121107
  Receipt Date: 20121107
  Transmission Date: 20130627
  Serious: No
  Sender: FDA-Public Use
  Company Number: US-AMGEN-USASP2011049755

PATIENT
  Age: 52 Year
  Sex: Female
  Weight: 90.7 kg

DRUGS (8)
  1. ENBREL [Suspect]
     Indication: PRODUCT USED FOR UNKNOWN INDICATION
     Dosage: 50 mg, qwk
     Route: 058
  2. METHOTREXATE [Concomitant]
     Dosage: 2.5 mg, UNK
  3. FOLIC ACID [Concomitant]
     Dosage: 20 mg, UNK
  4. VITAMIN D /00107901/ [Concomitant]
     Dosage: 400 IU, UNK
  5. LYRICA [Concomitant]
     Dosage: 25 mg, UNK
  6. EFFEXOR [Concomitant]
     Dosage: 50 mg, UNK
  7. AMBIEN [Concomitant]
     Dosage: 5 mg, UNK
  8. MULTIVITAMIN                       /00097801/ [Concomitant]

REACTIONS (1)
  - Bronchitis [Unknown]
